FAERS Safety Report 15659960 (Version 1)
Quarter: 2018Q4

REPORT INFORMATION
  Report Type: Spontaneous
  Country: RO (occurrence: RO)
  Receive Date: 20181127
  Receipt Date: 20181127
  Transmission Date: 20190205
  Serious: Yes (Life-Threatening, Hospitalization, Other)
  Sender: FDA-Public Use
  Company Number: RO-ROCHE-2207105

PATIENT
  Age: 45 Year
  Sex: Female
  Weight: 51 kg

DRUGS (4)
  1. SPIRIVA [Concomitant]
     Active Substance: TIOTROPIUM BROMIDE MONOHYDRATE
     Indication: ASTHMA
     Route: 055
     Dates: start: 20150925
  2. XOLAIR [Suspect]
     Active Substance: OMALIZUMAB
     Indication: ASTHMA
     Route: 058
     Dates: start: 20181025, end: 20181025
  3. VENTOLIN [Concomitant]
     Active Substance: ALBUTEROL SULFATE
     Indication: ASTHMA
     Dosage: UNK, PRN
     Route: 055
     Dates: start: 2013
  4. FOSTER (ROMANIA) [Concomitant]
     Indication: ASTHMA
     Route: 055
     Dates: start: 20180905

REACTIONS (6)
  - Administration site pruritus [Recovered/Resolved]
  - Dyspnoea [Unknown]
  - Respiratory distress [Unknown]
  - Bronchospasm [Recovered/Resolved]
  - Wheezing [Unknown]
  - Urticaria [Unknown]

NARRATIVE: CASE EVENT DATE: 20181025
